FAERS Safety Report 24306181 (Version 3)
Quarter: 2024Q4

REPORT INFORMATION
  Report Type: Spontaneous
  Country: US (occurrence: US)
  Receive Date: 20240911
  Receipt Date: 20241007
  Transmission Date: 20250114
  Serious: Yes (Hospitalization, Other)
  Sender: AUROBINDO
  Company Number: US-AUROBINDO-AUR-APL-2024-044534

PATIENT
  Age: 42 Year
  Sex: Female

DRUGS (7)
  1. CYCLOPHOSPHAMIDE [Suspect]
     Active Substance: CYCLOPHOSPHAMIDE
     Indication: High grade B-cell lymphoma refractory
     Dosage: UNK
     Route: 065
  2. DEXAMETHASONE [Suspect]
     Active Substance: DEXAMETHASONE
     Indication: High grade B-cell lymphoma refractory
     Dosage: 10 MILLIGRAM, FOUR TIMES/DAY
     Route: 065
  3. LEVETIRACETAM [Suspect]
     Active Substance: LEVETIRACETAM
     Indication: High grade B-cell lymphoma refractory
     Dosage: UNK
     Route: 065
  4. METHYLPREDNISOLONE ACETATE [Suspect]
     Active Substance: METHYLPREDNISOLONE ACETATE
     Indication: High grade B-cell lymphoma refractory
     Dosage: 1000 MILLIGRAM, DAILY (3 DAYS)
     Route: 042
  5. MANNITOL [Suspect]
     Active Substance: MANNITOL
     Indication: High grade B-cell lymphoma refractory
     Dosage: UNK
     Route: 065
  6. SILTUXIMAB [Suspect]
     Active Substance: SILTUXIMAB
     Indication: High grade B-cell lymphoma refractory
     Dosage: UNK
     Route: 065
  7. SODIUM CHLORIDE [Suspect]
     Active Substance: SODIUM CHLORIDE
     Indication: High grade B-cell lymphoma refractory
     Dosage: HYPERTONIC SALINE
     Route: 065

REACTIONS (1)
  - Drug ineffective [Unknown]
